FAERS Safety Report 7365867-6 (Version None)
Quarter: 2011Q1

REPORT INFORMATION
  Report Type: 
  Country: None (occurrence: None)
  Receive Date: 20110316
  Receipt Date: 20110316
  Transmission Date: 20110831
  Serious: No
  Sender: FDA-Public Use
  Company Number: None

PATIENT
  Age: 42 Year
  Sex: Male
  Weight: 61.6892 kg

DRUGS (1)
  1. LEVAQUIN [Suspect]
     Indication: ESCHERICHIA INFECTION
     Dosage: 500MG 1 DAY PO
     Route: 048
     Dates: start: 20110309, end: 20110312

REACTIONS (5)
  - OCULAR HYPERAEMIA [None]
  - FEELING ABNORMAL [None]
  - INSOMNIA [None]
  - CONSTIPATION [None]
  - HYPOAESTHESIA [None]
